FAERS Safety Report 7535673-8 (Version None)
Quarter: 2011Q2

REPORT INFORMATION
  Report Type: 
  Country: None (occurrence: None)
  Receive Date: 20110609
  Receipt Date: 20110601
  Transmission Date: 20111010
  Serious: Yes (Hospitalization)
  Sender: FDA-Public Use
  Company Number: US-US-EMD SERONO, INC.-7062960

PATIENT
  Sex: Female

DRUGS (2)
  1. REBIF [Suspect]
     Dates: start: 20110501
  2. REBIF [Suspect]
     Indication: MULTIPLE SCLEROSIS
     Dates: start: 20100301, end: 20110501

REACTIONS (4)
  - FALL [None]
  - PYREXIA [None]
  - DYSPHEMIA [None]
  - GAIT DISTURBANCE [None]
